FAERS Safety Report 8047416-2 (Version None)
Quarter: 2012Q1

REPORT INFORMATION
  Report Type: 
  Country: None (occurrence: None)
  Receive Date: 20120116
  Receipt Date: 20120106
  Transmission Date: 20120608
  Serious: Yes (Other)
  Sender: FDA-Public Use
  Company Number: CN-JNJFOC-20120103572

PATIENT
  Sex: Female
  Weight: 64 kg

DRUGS (2)
  1. REMICADE [Suspect]
     Indication: RHEUMATOID ARTHRITIS
     Route: 042
     Dates: start: 20120106
  2. REMICADE [Suspect]
     Route: 042

REACTIONS (4)
  - INFUSION RELATED REACTION [None]
  - PALPITATIONS [None]
  - URTICARIA [None]
  - DYSPNOEA [None]
